FAERS Safety Report 8836714 (Version 1)
Quarter: 2012Q4

REPORT INFORMATION
  Report Type: Spontaneous
  Country: US (occurrence: None)
  Receive Date: 20121010
  Receipt Date: 20121010
  Transmission Date: 20130627
  Serious: Yes (Other)
  Sender: FDA-Public Use
  Company Number: USA/USA/12/0026135

PATIENT
  Age: 60 Year
  Sex: Female

DRUGS (2)
  1. LAMOTRIGINE [Suspect]
     Indication: MAJOR DEPRESSION
  2. ARIPIPRAZOLE [Suspect]
     Indication: MAJOR DEPRESSION

REACTIONS (2)
  - Intention tremor [None]
  - Drug interaction [None]
